FAERS Safety Report 7790177-2 (Version None)
Quarter: 2011Q3

REPORT INFORMATION
  Report Type: 
  Country: None (occurrence: None)
  Receive Date: 20110930
  Receipt Date: 20110426
  Transmission Date: 20111222
  Serious: Yes (Other)
  Sender: FDA-Public Use
  Company Number: US-ASTRAZENECA-2011SE17627

PATIENT
  Age: 77 Year
  Sex: Female

DRUGS (1)
  1. ARIMIDEX [Suspect]
     Route: 048
     Dates: end: 20101001

REACTIONS (4)
  - METASTASES TO BONE [None]
  - RECURRENT CANCER [None]
  - HIP FRACTURE [None]
  - METASTASES TO LIVER [None]
